FAERS Safety Report 7543958-4 (Version None)
Quarter: 2011Q2

REPORT INFORMATION
  Report Type: 
  Country: None (occurrence: None)
  Receive Date: 20110613
  Receipt Date: 20041013
  Transmission Date: 20111010
  Serious: Yes (Death)
  Sender: FDA-Public Use
  Company Number: PHHO2004VE13834

PATIENT
  Sex: Male

DRUGS (4)
  1. DIOVAN HCT [Suspect]
     Dates: start: 20020101
  2. ASCORBIC ACID [Concomitant]
  3. DIURETICS [Concomitant]
  4. DIOVAN [Suspect]
     Dosage: 80 MG, QD
     Route: 048
     Dates: start: 20020101

REACTIONS (4)
  - CYSTITIS HAEMORRHAGIC [None]
  - RENAL FAILURE [None]
  - BLADDER OBSTRUCTION [None]
  - PROSTATIC DISORDER [None]
